FAERS Safety Report 10575502 (Version 1)
Quarter: 2014Q4

REPORT INFORMATION
  Report Type: Other
  Country: US (occurrence: US)
  Receive Date: 20141111
  Receipt Date: 20141111
  Transmission Date: 20150529
  Serious: Yes (Death, Hospitalization, Other)
  Sender: FDA-Public Use
  Company Number: US-SHIRE-US201407641

PATIENT
  Age: 83 Year
  Sex: Male

DRUGS (1)
  1. FOSRENOL [Suspect]
     Active Substance: LANTHANUM CARBONATE
     Indication: PRODUCT USED FOR UNKNOWN INDICATION
     Dosage: UNK, UNKNOWN
     Route: 048

REACTIONS (5)
  - Drug dose omission [Unknown]
  - Gastritis [Unknown]
  - Death [Fatal]
  - Change of bowel habit [Unknown]
  - Haematochezia [Unknown]

NARRATIVE: CASE EVENT DATE: 2014
